FAERS Safety Report 11103723 (Version 1)
Quarter: 2015Q2

REPORT INFORMATION
  Report Type: Spontaneous
  Country: CN (occurrence: None)
  Receive Date: 20150507
  Receipt Date: 20150507
  Transmission Date: 20150821
  Serious: Yes (Other)
  Sender: FDA-Public Use
  Company Number: 8023431

PATIENT
  Age: 56 Year
  Sex: Female

DRUGS (1)
  1. EUTHYROX 50 MCG (LEVOTHYROXINE SODIUM) (TABLET) (LEVOTHYROXINE SODIUM) [Suspect]
     Active Substance: LEVOTHYROXINE SODIUM
     Indication: HYPOTHYROIDISM
     Route: 048
     Dates: start: 2010

REACTIONS (1)
  - Anti-thyroid antibody positive [None]

NARRATIVE: CASE EVENT DATE: 20150311
